FAERS Safety Report 21816808 (Version 1)
Quarter: 2023Q1

REPORT INFORMATION
  Report Type: Report from Study
  Country: IT (occurrence: IT)
  Receive Date: 20230104
  Receipt Date: 20230104
  Transmission Date: 20230418
  Serious: Yes (Other)
  Sender: FDA-Public Use
  Company Number: None

PATIENT

DRUGS (9)
  1. PEGASPARGASE [Suspect]
     Active Substance: PEGASPARGASE
     Indication: Acute lymphocytic leukaemia
     Dosage: 3597.5 UI/DAY ON 03/10/2022-17/10/22
     Route: 042
     Dates: start: 20221003, end: 20221017
  2. PURINETHOL [Suspect]
     Active Substance: MERCAPTOPURINE
     Indication: Acute lymphocytic leukaemia
     Dosage: 85 MG ON 7/11/22, 87.5 MG FROM 8/11/22 TO 12/11/22
     Route: 048
     Dates: start: 20221107, end: 20221212
  3. VINCRISTINE [Suspect]
     Active Substance: VINCRISTINE
     Indication: Acute lymphocytic leukaemia
     Dosage: 2 MG/DAY ON 28/09/2022- 05/10/2022- 12/10/22- 24/10/22
     Route: 042
     Dates: start: 20220928, end: 20221024
  4. DAUNORUBICIN [Suspect]
     Active Substance: DAUNORUBICIN
     Indication: Acute lymphocytic leukaemia
     Dosage: 43 MG/DAY ON 28/09/2022-05/10/2022- 12/10/22- 24/10/22
     Route: 042
     Dates: start: 20220928, end: 20221024
  5. CYCLOPHOSPHAMIDE [Suspect]
     Active Substance: CYCLOPHOSPHAMIDE
     Indication: Acute lymphocytic leukaemia
     Dosage: 1.398 MG/DAY ON 7/11/22 AND 12/12/22
     Route: 042
     Dates: start: 20221107, end: 20221212
  6. CYTARABINE [Suspect]
     Active Substance: CYTARABINE
     Indication: Acute lymphocytic leukaemia
     Dosage: 104 MG FROM 9/11/22 TO 12/11/22, 99,50 MG/DAY FROM 23 TO 26/11/22 99,50 MG/DAY FROM 29/11 TO 02/12/2
     Route: 042
     Dates: start: 20221109, end: 20221112
  7. CYTARABINE [Suspect]
     Active Substance: CYTARABINE
     Dosage: 104 MG FROM 9/11/22 TO 12/11/22, 99,50 MG/DAY FROM 23 TO 26/11/22 99,50 MG/DAY FROM 29/11 TO 02/12/2
     Route: 042
     Dates: start: 20221123, end: 20221210
  8. OMEPRAZOLE [Concomitant]
     Active Substance: OMEPRAZOLE
     Indication: Product used for unknown indication
     Dosage: 40 MG/DAY
     Route: 042
     Dates: start: 20220920, end: 20221008
  9. DEXAMETHASONE [Concomitant]
     Active Substance: DEXAMETHASONE
     Indication: Acute lymphocytic leukaemia
     Dosage: 5 MG X 3V/DAY (FROM 28/9 TO 08/10/22)2.5 MG 3 TIMES/DAY FROM 18/10/22 TO 19/10/22 1 MG 3 TIMES/DAY F
     Route: 042
     Dates: start: 20220928, end: 20221024

REACTIONS (3)
  - Anaemia [Not Recovered/Not Resolved]
  - Leukopenia [Not Recovered/Not Resolved]
  - Pancytopenia [Not Recovered/Not Resolved]

NARRATIVE: CASE EVENT DATE: 20220930
